FAERS Safety Report 9518799 (Version 1)
Quarter: 2013Q3

REPORT INFORMATION
  Report Type: Spontaneous
  Country: US (occurrence: None)
  Receive Date: 20130910
  Receipt Date: 20130910
  Transmission Date: 20140515
  Serious: Yes (Hospitalization, Disabling)
  Sender: FDA-Public Use
  Company Number: None

PATIENT
  Age: 76 Year
  Sex: Female
  Weight: 82 kg

DRUGS (1)
  1. GEMCITABINE UNKNOWN UNKNOWN [Suspect]
     Indication: METASTATIC NEOPLASM
     Route: 042

REACTIONS (3)
  - Renal failure [None]
  - Haemolytic uraemic syndrome [None]
  - Thrombocytopenia [None]
